FAERS Safety Report 18052723 (Version 2)
Quarter: 2020Q3

REPORT INFORMATION
  Report Type: Spontaneous
  Country: CN (occurrence: CN)
  Receive Date: 20200722
  Receipt Date: 20200729
  Transmission Date: 20201105
  Serious: Yes (Hospitalization, Other)
  Sender: FDA-Public Use
  Company Number: CN-LUPIN PHARMACEUTICALS INC.-2020-03560

PATIENT
  Age: 48 Year
  Sex: Female

DRUGS (7)
  1. OMEPRAZOLE. [Suspect]
     Active Substance: OMEPRAZOLE
     Indication: PROPHYLAXIS
     Dosage: UNK
     Route: 048
  2. GANGLIOSIDE : GM1 [Concomitant]
     Indication: PRODUCT USED FOR UNKNOWN INDICATION
     Dosage: UNK
     Route: 065
     Dates: start: 201909
  3. CATEQUENTINIB. [Suspect]
     Active Substance: CATEQUENTINIB
     Indication: LEIOMYOSARCOMA METASTATIC
     Dosage: 12 MILLIGRAM, QD (ADMINISTERED AS 2 WEEKS ON/1 WEEK OFF; GIVEN FOR ABOUT THREE MONTHS)
     Route: 048
  4. HIRUDIN [Concomitant]
     Active Substance: HIRUDIN
     Indication: PRODUCT USED FOR UNKNOWN INDICATION
     Dosage: UNK
     Route: 065
     Dates: start: 201909
  5. SHU XUE TONG ZHU SHE YE [Concomitant]
     Indication: PROMOTION OF PERIPHERAL CIRCULATION
     Dosage: UNK
     Route: 065
     Dates: start: 201909
  6. METOCLOPRAMIDE. [Suspect]
     Active Substance: METOCLOPRAMIDE
     Indication: PROPHYLAXIS
     Dosage: UNK
     Route: 048
  7. VALSARTAN. [Suspect]
     Active Substance: VALSARTAN
     Indication: HYPERTENSION
     Dosage: 160 MILLIGRAM, QD
     Route: 065
     Dates: start: 201909, end: 2019

REACTIONS (3)
  - Hypotension [Recovered/Resolved]
  - Vitreous opacities [Recovering/Resolving]
  - Retinopathy hypertensive [Recovering/Resolving]

NARRATIVE: CASE EVENT DATE: 2019
